FAERS Safety Report 23667963 (Version 5)
Quarter: 2024Q2

REPORT INFORMATION
  Report Type: Spontaneous
  Country: US (occurrence: US)
  Receive Date: 20240325
  Receipt Date: 20240509
  Transmission Date: 20240716
  Serious: Yes (Other)
  Sender: FDA-Public Use
  Company Number: US-UCBSA-2023029896

PATIENT
  Sex: Female

DRUGS (3)
  1. CIMZIA [Suspect]
     Active Substance: CERTOLIZUMAB PEGOL
     Indication: Rheumatoid arthritis
     Dosage: 400 MILLIGRAM, EV 2 WEEKS(QOW)
     Route: 058
     Dates: start: 20230527
  2. CIMZIA [Suspect]
     Active Substance: CERTOLIZUMAB PEGOL
     Dosage: 200 MILLIGRAM, EV 2 WEEKS(QOW)
     Route: 058
  3. PREDNISONE [Suspect]
     Active Substance: PREDNISONE
     Indication: Pain
     Dosage: UNK

REACTIONS (6)
  - Diabetes mellitus [Not Recovered/Not Resolved]
  - Injection site pain [Unknown]
  - Rash [Unknown]
  - Urticaria [Unknown]
  - Drug ineffective [Unknown]
  - Patient dissatisfaction with device [Unknown]

NARRATIVE: CASE EVENT DATE: 20240101
